FAERS Safety Report 17240441 (Version 1)
Quarter: 2020Q1

REPORT INFORMATION
  Report Type: Spontaneous
  Country: GB (occurrence: GB)
  Receive Date: 20200107
  Receipt Date: 20200107
  Transmission Date: 20200409
  Serious: Yes (Hospitalization)
  Sender: FDA-Public Use
  Company Number: GB-ROCHE-2514145

PATIENT
  Age: 74 Year
  Sex: Female

DRUGS (7)
  1. LANSOPRAZOLE. [Concomitant]
     Active Substance: LANSOPRAZOLE
  2. TIOTROPIUM [Concomitant]
     Active Substance: TIOTROPIUM
  3. EDOXABAN [Concomitant]
     Active Substance: EDOXABAN TOSYLATE
  4. BUMETANIDE. [Concomitant]
     Active Substance: BUMETANIDE
  5. SALBUTAMOL [Concomitant]
     Active Substance: ALBUTEROL
  6. PIRFENIDONE. [Suspect]
     Active Substance: PIRFENIDONE
     Indication: IDIOPATHIC PULMONARY FIBROSIS
     Route: 048
     Dates: end: 20191205
  7. CIPROFLOXACIN. [Concomitant]
     Active Substance: CIPROFLOXACIN

REACTIONS (1)
  - Pneumonia [Not Recovered/Not Resolved]
